FAERS Safety Report 25287381 (Version 1)
Quarter: 2025Q2

REPORT INFORMATION
  Report Type: Spontaneous
  Country: GB (occurrence: GB)
  Receive Date: 20250509
  Receipt Date: 20250509
  Transmission Date: 20250717
  Serious: Yes (Hospitalization, Other)
  Sender: AUROBINDO
  Company Number: GB-MHRA-MIDB-c53fbd6f-07ba-46c2-a756-a8cd59616bfc

PATIENT
  Age: 81 Year

DRUGS (2)
  1. ATORVASTATIN [Suspect]
     Active Substance: ATORVASTATIN
     Indication: Product used for unknown indication
     Dosage: 20 MILLIGRAM, ONCE A DAY (ONE TO BE TAKEN EACH NIGHT)
     Route: 065
  2. BISOPROLOL [Concomitant]
     Active Substance: BISOPROLOL
     Indication: Product used for unknown indication
     Dosage: 2.5 MILLIGRAM, ONCE A DAY (ONE TO BE TAKEN EACH MORNING)
     Route: 065

REACTIONS (2)
  - Transaminases abnormal [Unknown]
  - Liver function test abnormal [Unknown]
